FAERS Safety Report 4771959-8 (Version None)
Quarter: 2005Q3

REPORT INFORMATION
  Report Type: 
  Country: None (occurrence: None)
  Receive Date: 20050916
  Receipt Date: 20050705
  Transmission Date: 20060218
  Serious: Yes (Hospitalization, Other)
  Sender: FDA-Public Use
  Company Number: PHRM2005FR02031

PATIENT
  Age: 57 Year
  Sex: Male
  Weight: 84 kg

DRUGS (15)
  1. GLEEVEC [Suspect]
     Indication: CHRONIC MYELOID LEUKAEMIA
     Dosage: 400 MG/DAY
     Route: 048
     Dates: start: 20050101, end: 20050629
  2. PARACETAMOL [Suspect]
     Indication: PYREXIA
     Dosage: 3 G/DAY
     Route: 065
     Dates: start: 20050627, end: 20050627
  3. PARACETAMOL [Suspect]
     Dosage: 2 G/DAY
     Route: 065
     Dates: start: 20050628, end: 20050628
  4. CORTANCYL [Concomitant]
     Indication: VASCULITIS
     Dosage: 7 MG DAILY
     Route: 048
     Dates: start: 19960101
  5. PLAQUENIL [Concomitant]
     Indication: VASCULITIS
     Dosage: 200 MG DAILY
     Route: 048
     Dates: start: 19960101
  6. AMIODARONE HCL [Concomitant]
     Indication: ARRHYTHMIA
     Dosage: 200 MG, BID
     Route: 048
  7. RYTHMOL [Concomitant]
     Indication: ARRHYTHMIA
     Dosage: 450 MG DAILY
     Route: 048
  8. TRIATEC [Concomitant]
     Indication: HYPERTENSION
     Dosage: 5 MG, BID
     Route: 048
  9. PREVISCAN [Concomitant]
     Dosage: 20 MG, QD
     Route: 048
  10. ACTONEL [Concomitant]
     Dosage: 35 MG PER WEEK
  11. OROCAL D3 [Concomitant]
     Dosage: 2 DF DAILY
  12. INSULIN [Concomitant]
     Dosage: 8 IU DAILY
  13. LASILIX [Concomitant]
     Dosage: 20 MG DAILY
  14. OMEPRAZOLE [Concomitant]
     Dosage: 20 MG, QD
     Route: 048
  15. LOVENOX [Concomitant]
     Dosage: 0.4 ML, BID

REACTIONS (20)
  - ABDOMINAL PAIN UPPER [None]
  - ALANINE AMINOTRANSFERASE INCREASED [None]
  - ASPARTATE AMINOTRANSFERASE INCREASED [None]
  - ASTHENIA [None]
  - BLOOD IRON INCREASED [None]
  - C-REACTIVE PROTEIN INCREASED [None]
  - CHILLS [None]
  - CHOLELITHIASIS [None]
  - CYTOLYTIC HEPATITIS [None]
  - DRUG INTERACTION [None]
  - EYE PAIN [None]
  - GAMMA-GLUTAMYLTRANSFERASE INCREASED [None]
  - HEADACHE [None]
  - HEART RATE IRREGULAR [None]
  - INTERNATIONAL NORMALISED RATIO INCREASED [None]
  - NAUSEA [None]
  - PROTHROMBIN LEVEL DECREASED [None]
  - PYREXIA [None]
  - VIRAL INFECTION [None]
  - VOMITING [None]
